FAERS Safety Report 7296107-4 (Version None)
Quarter: 2011Q1

REPORT INFORMATION
  Report Type: 
  Country: None (occurrence: None)
  Receive Date: 20110216
  Receipt Date: 20110209
  Transmission Date: 20110831
  Serious: Yes (Hospitalization)
  Sender: FDA-Public Use
  Company Number: LT-ROCHE-753833

PATIENT
  Sex: Male
  Weight: 80 kg

DRUGS (9)
  1. ISOSORBIDI DINITRAS [Concomitant]
     Dates: start: 20070815
  2. LORAZEPAMUM [Concomitant]
     Dates: start: 20050315
  3. VITAMIN B6/VITAMIN B12 [Concomitant]
     Dates: start: 20031115
  4. CALCIUM CARBONATE [Concomitant]
     Dates: start: 20030515
  5. ACIDUM FOLICUM [Concomitant]
     Dates: start: 20031115
  6. METHOXY POLYETHYLENE GLYCOL-EPOETIN BETA [Suspect]
     Dosage: FORM: PREFILLED SYRINGE. LAST DOSE PRIOR TO SAE: 28 JANUARY 2011.
     Route: 058
     Dates: start: 20100928
  7. CARVEDILOLUM [Concomitant]
     Dates: start: 20030115
  8. ATORVASTATINUM [Concomitant]
     Dates: start: 20080615
  9. RANITIDINE [Concomitant]
     Dates: start: 20100408

REACTIONS (2)
  - ISCHAEMIC STROKE [None]
  - ATRIAL FIBRILLATION [None]
